FAERS Safety Report 10892047 (Version 3)
Quarter: 2015Q2

REPORT INFORMATION
  Report Type: Spontaneous
  Country: JP (occurrence: JP)
  Receive Date: 20150306
  Receipt Date: 20150415
  Transmission Date: 20150821
  Serious: Yes (Hospitalization)
  Sender: FDA-Public Use
  Company Number: JP-ABBVIE-15P-087-1356819-00

PATIENT
  Age: 71 Year
  Sex: Female

DRUGS (16)
  1. ACETAMINOPHEN. [Suspect]
     Active Substance: ACETAMINOPHEN
     Indication: UPPER RESPIRATORY TRACT INFLAMMATION
     Dosage: 400 MG, AS NEEEDED
     Route: 048
     Dates: start: 20141220, end: 20150105
  2. RIFADIN [Concomitant]
     Active Substance: RIFAMPIN
     Indication: ATYPICAL MYCOBACTERIAL INFECTION
     Route: 048
  3. CLARITH TAB 200 MG [Suspect]
     Active Substance: CLARITHROMYCIN
     Route: 048
     Dates: start: 20150113, end: 20150124
  4. MUCODYNE [Suspect]
     Active Substance: CARBOCYSTEINE
     Indication: BRONCHITIS
     Route: 048
     Dates: start: 20141220, end: 20150105
  5. ASTOMIN [Suspect]
     Active Substance: DIMEMORFAN
     Indication: BRONCHITIS
     Route: 048
     Dates: start: 20141220, end: 20150105
  6. GRACEVIT [Suspect]
     Active Substance: SITAFLOXACIN
     Indication: BRONCHITIS
     Route: 048
     Dates: start: 20141220, end: 20150105
  7. RABEPRAZOLE SODIUM. [Suspect]
     Active Substance: RABEPRAZOLE SODIUM
     Route: 048
     Dates: start: 20150113, end: 20150220
  8. CLARITH TAB 200 MG [Suspect]
     Active Substance: CLARITHROMYCIN
     Indication: ATYPICAL MYCOBACTERIAL INFECTION
     Route: 048
     Dates: end: 20150105
  9. ESANBUTOL [Suspect]
     Active Substance: ETHAMBUTOL HYDROCHLORIDE
     Indication: ATYPICAL MYCOBACTERIAL INFECTION
     Route: 048
     Dates: end: 20150106
  10. AUGMENTIN [Concomitant]
     Active Substance: AMOXICILLIN\CLAVULANATE POTASSIUM
     Indication: BRONCHITIS
     Route: 048
     Dates: start: 20141226, end: 20150105
  11. CLARITH TAB 200 MG [Suspect]
     Active Substance: CLARITHROMYCIN
     Route: 048
     Dates: start: 20150201, end: 20150219
  12. MONTELUKAST [Suspect]
     Active Substance: MONTELUKAST SODIUM
     Indication: ASTHMA
     Route: 048
     Dates: start: 20150114, end: 20150125
  13. MONTELUKAST [Suspect]
     Active Substance: MONTELUKAST SODIUM
     Route: 048
     Dates: start: 20150203, end: 20150207
  14. RIFADIN [Concomitant]
     Active Substance: RIFAMPIN
     Route: 048
     Dates: start: 20150113
  15. RABEPRAZOLE SODIUM. [Suspect]
     Active Substance: RABEPRAZOLE SODIUM
     Indication: PROPHYLAXIS AGAINST GASTROINTESTINAL ULCER
     Route: 048
     Dates: end: 20150106
  16. ESANBUTOL [Suspect]
     Active Substance: ETHAMBUTOL HYDROCHLORIDE
     Route: 048
     Dates: start: 20150113, end: 20150220

REACTIONS (1)
  - Drug-induced liver injury [Not Recovered/Not Resolved]

NARRATIVE: CASE EVENT DATE: 20141226
